FAERS Safety Report 9235480 (Version 2)
Quarter: 2013Q3

REPORT INFORMATION
  Report Type: Report from Study
  Country: US (occurrence: US)
  Receive Date: 20121031
  Receipt Date: 20130926
  Transmission Date: 20140515
  Serious: Yes (Other)
  Sender: FDA-Public Use
  Company Number: PHEH2012US011564

PATIENT
  Sex: Male
  Weight: 83.9 kg

DRUGS (9)
  1. GILENYA [Suspect]
     Indication: MULTIPLE SCLEROSIS
     Dosage: 0.5 MG, QD
     Route: 048
     Dates: start: 20120606
  2. RITALIN [Suspect]
     Dosage: 10 MG, UNK
  3. TEGRETOL [Suspect]
     Indication: TREMOR
     Dosage: 100 MG, 5X AM/5X PM
  4. PROZAC [Concomitant]
     Dosage: 20 MG, 2X AM/ 1X PM
  5. VALIUM [Concomitant]
     Dosage: 5 MG, UNK
  6. VIT D3 [Concomitant]
  7. VESICARE [Concomitant]
  8. AMITIZA [Concomitant]
     Dosage: 24 MG, UNK
  9. HYDROCODONE [Concomitant]

REACTIONS (6)
  - Central nervous system lesion [Unknown]
  - Atrophy [Unknown]
  - Speech disorder [Unknown]
  - Fatigue [Unknown]
  - Somnolence [Unknown]
  - Constipation [Unknown]
